FAERS Safety Report 6517652-2 (Version None)
Quarter: 2009Q4

REPORT INFORMATION
  Report Type: 
  Country: None (occurrence: None)
  Receive Date: 20091224
  Receipt Date: 20091221
  Transmission Date: 20100525
  Serious: Yes (Hospitalization)
  Sender: FDA-Public Use
  Company Number: PHHO2007US12270

PATIENT
  Sex: Male
  Weight: 86.18 kg

DRUGS (2)
  1. CERTICAN [Suspect]
     Indication: HEART TRANSPLANT
     Dosage: 1.5 MG, QD
     Route: 048
     Dates: start: 20070228
  2. NEORAL [Suspect]
     Indication: HEART TRANSPLANT
     Dosage: 150 MG, QD
     Route: 048
     Dates: start: 20070228

REACTIONS (1)
  - OSTEOLYSIS [None]
